FAERS Safety Report 8337300-9 (Version None)
Quarter: 2012Q2

REPORT INFORMATION
  Report Type: 
  Country: None (occurrence: None)
  Receive Date: 20120504
  Receipt Date: 20120430
  Transmission Date: 20120825
  Serious: No
  Sender: FDA-Public Use
  Company Number: US-PFIZER INC-2012106453

PATIENT
  Age: 26 Year
  Sex: Female
  Weight: 122 kg

DRUGS (1)
  1. DILANTIN [Suspect]
     Indication: EPILEPSY
     Dosage: 300MG IN THE MORNING AND 200 MG AT NIGHT
     Route: 048

REACTIONS (2)
  - SPEECH DISORDER [None]
  - AMNESIA [None]
